FAERS Safety Report 6761160-0 (Version None)
Quarter: 2010Q2

REPORT INFORMATION
  Report Type: 
  Country: None (occurrence: None)
  Receive Date: 20100608
  Receipt Date: 20100528
  Transmission Date: 20101027
  Serious: Yes (Hospitalization)
  Sender: FDA-Public Use
  Company Number: US-JNJFOC-20100600662

PATIENT
  Age: 15 Year
  Sex: Male

DRUGS (3)
  1. EXTRA STRENGTH TYLENOL PM [Suspect]
     Indication: INSOMNIA
  2. ALCOHOL [Suspect]
     Indication: DRUG USE FOR UNKNOWN INDICATION
  3. MARIJUANA [Suspect]
     Indication: DRUG USE FOR UNKNOWN INDICATION

REACTIONS (4)
  - ACCIDENTAL OVERDOSE [None]
  - AGGRESSION [None]
  - DYSARTHRIA [None]
  - IRRITABILITY [None]
